FAERS Safety Report 5203717-4 (Version None)
Quarter: 2007Q1

REPORT INFORMATION
  Report Type: 
  Country: None (occurrence: None)
  Receive Date: 20070109
  Receipt Date: 20070109
  Transmission Date: 20070707
  Serious: Yes (Death)
  Sender: FDA-Public Use
  Company Number: None

PATIENT
  Age: 87 Year
  Sex: Female
  Weight: 53 kg

DRUGS (1)
  1. COUMADIN [Suspect]
     Indication: DEEP VEIN THROMBOSIS
     Dosage: NOT KNOWN

REACTIONS (5)
  - DISORIENTATION [None]
  - HEADACHE [None]
  - INTRAVENTRICULAR HAEMORRHAGE [None]
  - RESPIRATORY DISTRESS [None]
  - SUBARACHNOID HAEMORRHAGE [None]
